FAERS Safety Report 6338628-4 (Version None)
Quarter: 2009Q3

REPORT INFORMATION
  Report Type: 
  Country: None (occurrence: None)
  Receive Date: 20090903
  Receipt Date: 20070925
  Transmission Date: 20100115
  Serious: Yes (Other)
  Sender: FDA-Public Use
  Company Number: US-ASTRAZENECA-2006UW22175

PATIENT
  Age: 14629 Day
  Sex: Female
  Weight: 86.2 kg

DRUGS (16)
  1. SEROQUEL [Suspect]
     Indication: DEPRESSION
     Route: 048
     Dates: start: 20041108
  2. SEROQUEL [Suspect]
     Indication: BIPOLAR DISORDER
     Route: 048
     Dates: start: 20041108
  3. SEROQUEL [Suspect]
     Indication: INSOMNIA
     Route: 048
     Dates: start: 20041108
  4. SEROQUEL [Suspect]
     Route: 048
     Dates: end: 20060301
  5. SEROQUEL [Suspect]
     Route: 048
     Dates: end: 20060301
  6. SEROQUEL [Suspect]
     Route: 048
     Dates: end: 20060301
  7. ZYPREXA [Concomitant]
     Dates: start: 20070101
  8. SYNTHROID [Concomitant]
     Dates: start: 20041015
  9. NEURONTIN [Concomitant]
     Dates: start: 20041015
  10. LIPITOR [Concomitant]
     Dates: start: 20041015
  11. DEPAKOTE ER [Concomitant]
     Dates: start: 20041108
  12. AMITRIPTYLINE [Concomitant]
     Dates: start: 20051118
  13. WELLBUTRIN XL [Concomitant]
     Dosage: 300
     Dates: start: 20051118
  14. TRAZODONE [Concomitant]
     Dates: start: 20060203
  15. TEGRETOL [Concomitant]
     Dates: start: 20060419
  16. LITHIUM CARBONATE [Concomitant]
     Dosage: 300 M
     Dates: start: 20060531

REACTIONS (5)
  - BLOOD GLUCOSE ABNORMAL [None]
  - CHOLECYSTECTOMY [None]
  - DIABETES MELLITUS [None]
  - DIABETIC NEUROPATHY [None]
  - PANCREATITIS [None]
